FAERS Safety Report 26047566 (Version 2)
Quarter: 2025Q4

REPORT INFORMATION
  Report Type: Spontaneous
  Country: US (occurrence: US)
  Receive Date: 20251114
  Receipt Date: 20251224
  Transmission Date: 20260117
  Serious: Yes (Other)
  Sender: OTSUKA
  Company Number: US-MMM-Otsuka-W4JF1A3X

PATIENT
  Sex: Female
  Weight: 85.26 kg

DRUGS (35)
  1. REXULTI [Suspect]
     Active Substance: BREXPIPRAZOLE
     Indication: Bipolar disorder
     Dosage: 4 MG
     Route: 065
  2. REXULTI [Suspect]
     Active Substance: BREXPIPRAZOLE
     Dosage: 1 MG FOR 7 DAYS
     Route: 065
  3. REXULTI [Suspect]
     Active Substance: BREXPIPRAZOLE
     Dosage: 2 MG FOR 7 DAYS
     Route: 065
  4. REXULTI [Suspect]
     Active Substance: BREXPIPRAZOLE
     Dosage: 3 MG FOR 7 DAYS
     Route: 065
  5. REXULTI [Suspect]
     Active Substance: BREXPIPRAZOLE
     Dosage: 2 MG (DOSE REDUCED FROM 4 MG)
     Route: 065
  6. REXULTI [Suspect]
     Active Substance: BREXPIPRAZOLE
     Dosage: 1 MG FOR 7 DAYS
     Route: 065
  7. REXULTI [Suspect]
     Active Substance: BREXPIPRAZOLE
     Dosage: 2 MG FOR 7 DAYS
     Route: 065
  8. REXULTI [Suspect]
     Active Substance: BREXPIPRAZOLE
     Dosage: 3 MG FOR 7 DAYS
     Route: 065
  9. ABILIFY [Suspect]
     Active Substance: ARIPIPRAZOLE
     Indication: Antidepressant therapy
     Dosage: 15 MG, DAILY (DOSE INCREASED)
     Route: 065
     Dates: start: 2022, end: 2022
  10. ABILIFY [Suspect]
     Active Substance: ARIPIPRAZOLE
     Indication: Agitation
     Dosage: 10 MG
     Route: 065
  11. ABILIFY [Suspect]
     Active Substance: ARIPIPRAZOLE
     Dosage: 15 MG (RESTARTED)
     Route: 065
  12. ABILIFY [Suspect]
     Active Substance: ARIPIPRAZOLE
     Dosage: 2 MG
     Route: 065
  13. ABILIFY [Suspect]
     Active Substance: ARIPIPRAZOLE
     Dosage: 5 MG (DOSE INCREASED)
     Route: 065
  14. LATUDA [Suspect]
     Active Substance: LURASIDONE HYDROCHLORIDE
     Indication: Bipolar disorder
     Dosage: 80 MG
     Route: 065
  15. LATUDA [Suspect]
     Active Substance: LURASIDONE HYDROCHLORIDE
     Dosage: 40 MG
     Route: 065
  16. LATUDA [Suspect]
     Active Substance: LURASIDONE HYDROCHLORIDE
     Dosage: 60 MG
     Route: 065
  17. INGREZZA [Suspect]
     Active Substance: VALBENAZINE DITOSYLATE
     Indication: Product used for unknown indication
     Dosage: 40 MG (14 DAY TRIAL)
     Route: 065
  18. DULOXETINE [Suspect]
     Active Substance: DULOXETINE
     Indication: Product used for unknown indication
     Dosage: 60 MG, DAILY
     Route: 065
     Dates: start: 2022, end: 2022
  19. DULOXETINE [Suspect]
     Active Substance: DULOXETINE
     Dosage: 90 MG, DAILY
     Route: 065
     Dates: start: 2022, end: 2022
  20. DULOXETINE [Suspect]
     Active Substance: DULOXETINE
     Dosage: 120 MG, DAILY
     Route: 065
     Dates: start: 2022, end: 2023
  21. DULOXETINE [Suspect]
     Active Substance: DULOXETINE
     Dosage: 60 MG, DAILY
     Route: 065
     Dates: start: 2023, end: 2024
  22. DULOXETINE [Suspect]
     Active Substance: DULOXETINE
     Dosage: 30 MG, DAILY
     Route: 065
     Dates: start: 2024
  23. VENLAFAXINE [Suspect]
     Active Substance: VENLAFAXINE HYDROCHLORIDE
     Indication: Product used for unknown indication
     Dosage: 75 MG
     Route: 065
     Dates: start: 2019, end: 2019
  24. VENLAFAXINE [Suspect]
     Active Substance: VENLAFAXINE HYDROCHLORIDE
     Dosage: 150 MG, QD (2 DF, DAILY) (DOSE INCREASED)
     Route: 065
     Dates: start: 2019, end: 2021
  25. VENLAFAXINE [Suspect]
     Active Substance: VENLAFAXINE HYDROCHLORIDE
     Dosage: 225 MG, DAILY (150MG+75MG)
     Route: 065
     Dates: start: 2021, end: 2022
  26. VENLAFAXINE [Suspect]
     Active Substance: VENLAFAXINE HYDROCHLORIDE
     Dosage: 300 MG, DAILY (2 CAP 150 MG)
     Route: 065
     Dates: start: 2022
  27. LITHIUM [Suspect]
     Active Substance: LITHIUM
     Indication: Product used for unknown indication
     Dosage: 600 MG, BID (300 MG CAPSULE BID)
     Route: 065
     Dates: end: 2020
  28. LITHIUM [Suspect]
     Active Substance: LITHIUM
     Dosage: 600 MG, QD (2 CAPSULE 300MG QHS)
     Route: 065
     Dates: start: 2020, end: 2020
  29. LUNESTA [Concomitant]
     Active Substance: ESZOPICLONE
     Indication: Insomnia
     Dosage: 3 MG
     Route: 065
  30. LUNESTA [Concomitant]
     Active Substance: ESZOPICLONE
     Dosage: UNK, QD (QHS) AS NEEDED
     Route: 065
  31. LUNESTA [Concomitant]
     Active Substance: ESZOPICLONE
     Dosage: 3 MG, AS NECESSARY (PRN)
     Route: 065
  32. LUNESTA [Concomitant]
     Active Substance: ESZOPICLONE
     Dosage: 3 MG, QD (QHS)
     Route: 065
  33. phetarmine [Concomitant]
     Indication: Product used for unknown indication
     Dosage: 37.5 MG, QD
     Route: 065
  34. FAMOTIDINE [Concomitant]
     Active Substance: FAMOTIDINE
     Indication: Product used for unknown indication
     Dosage: 40 MG, DAILY
     Route: 065
  35. WELLBUTRIN [Concomitant]
     Active Substance: BUPROPION HYDROCHLORIDE
     Indication: Product used for unknown indication
     Dosage: 150 MG, QD (AT AM)
     Route: 065

REACTIONS (39)
  - Lower limb fracture [Unknown]
  - Foot fracture [Unknown]
  - Parkinson^s disease [Unknown]
  - Dystonia [Recovering/Resolving]
  - Fall [Unknown]
  - Tardive dyskinesia [Not Recovered/Not Resolved]
  - Huntington^s disease [Unknown]
  - Emotional poverty [Unknown]
  - Mood altered [Not Recovered/Not Resolved]
  - Vitamin D decreased [Unknown]
  - Blood albumin increased [Unknown]
  - Hypomania [Unknown]
  - Eating disorder [Unknown]
  - Depressed mood [Unknown]
  - Stress [Unknown]
  - Gait disturbance [Not Recovered/Not Resolved]
  - Tic [Unknown]
  - Weight decreased [Not Recovered/Not Resolved]
  - Sleep apnoea syndrome [Unknown]
  - Glucose tolerance impaired [Recovering/Resolving]
  - Agitation [Unknown]
  - Apathy [Unknown]
  - Sleep disorder [Not Recovered/Not Resolved]
  - Irritability [Unknown]
  - Muscle twitching [Not Recovered/Not Resolved]
  - Low density lipoprotein increased [Unknown]
  - Dyskinesia [Recovered/Resolved]
  - Alanine aminotransferase increased [Unknown]
  - Restlessness [Unknown]
  - Anxiety [Not Recovered/Not Resolved]
  - Fatigue [Unknown]
  - Nasopharyngitis [Unknown]
  - Self-injurious ideation [Unknown]
  - Weight increased [Recovering/Resolving]
  - Akathisia [Not Recovered/Not Resolved]
  - Tremor [Not Recovered/Not Resolved]
  - Somnolence [Unknown]
  - Drug effect less than expected [Unknown]
  - Product use in unapproved indication [Unknown]

NARRATIVE: CASE EVENT DATE: 20200101
